FAERS Safety Report 15120724 (Version 1)
Quarter: 2018Q3

REPORT INFORMATION
  Report Type: Spontaneous
  Country: US (occurrence: US)
  Receive Date: 20180709
  Receipt Date: 20180709
  Transmission Date: 20181010
  Serious: No
  Sender: FDA-Public Use
  Company Number: US-SA-2018SA161997

PATIENT
  Age: 61 Year
  Sex: Female

DRUGS (1)
  1. SOLIQUA 100/33 [Suspect]
     Active Substance: INSULIN GLARGINE\LIXISENATIDE
     Indication: TYPE 2 DIABETES MELLITUS
     Dosage: 24 IU, QD

REACTIONS (3)
  - Blood glucose fluctuation [Unknown]
  - Drug effect incomplete [Unknown]
  - Glycosylated haemoglobin increased [Unknown]
